FAERS Safety Report 9022692 (Version 1)
Quarter: 2013Q1

REPORT INFORMATION
  Report Type: Spontaneous
  Country: US (occurrence: US)
  Receive Date: 20130120
  Receipt Date: 20130120
  Transmission Date: 20140127
  Serious: No
  Sender: FDA-Public Use
  Company Number: US-ALLERGAN-1218099US

PATIENT
  Age: 82 Year
  Sex: Female
  Weight: 103 kg

DRUGS (4)
  1. BOTOX? [Suspect]
     Indication: DYSPHONIA
     Dosage: UNK, SINGLE
  2. ESTRACE [Concomitant]
     Indication: HORMONE REPLACEMENT THERAPY
     Dosage: UNK UNK, QD
     Route: 048
     Dates: start: 2000
  3. ALDACTONE                          /00006201/ [Concomitant]
     Indication: HYPERTENSION
     Dosage: UNK UNK, QD
     Route: 048
     Dates: start: 2007
  4. ARTANE [Concomitant]
     Indication: CONVULSION PROPHYLAXIS
     Dosage: UNK UNK, TID
     Route: 048

REACTIONS (4)
  - Speech disorder [Not Recovered/Not Resolved]
  - Tooth loss [Unknown]
  - Dental caries [Unknown]
  - Weight decreased [Not Recovered/Not Resolved]
